FAERS Safety Report 6680647-2 (Version None)
Quarter: 2010Q2

REPORT INFORMATION
  Report Type: 
  Country: None (occurrence: None)
  Receive Date: 20100414
  Receipt Date: 20100402
  Transmission Date: 20101027
  Serious: Yes (Life-Threatening)
  Sender: FDA-Public Use
  Company Number: GB-PFIZER INC-2010042205

PATIENT
  Age: 28 Year
  Sex: Female
  Weight: 64 kg

DRUGS (6)
  1. SYNAREL [Suspect]
     Indication: IN VITRO FERTILISATION
     Route: 048
  2. OVITRELLE [Suspect]
     Indication: IN VITRO FERTILISATION
     Dosage: 250 UG, SINGLE
  3. FOLLICLE-STIMULATING HORMONE, HUMAN [Suspect]
     Indication: IN VITRO FERTILISATION
  4. DICLOFENAC [Concomitant]
     Dosage: 50 MG, 3X/DAY
  5. PARACETAMOL [Concomitant]
     Dosage: 1 G, 4X/DAY
  6. TRAMADOL [Concomitant]
     Dosage: 50-100 MG

REACTIONS (1)
  - DEMYELINATION [None]
